FAERS Safety Report 10218553 (Version 2)
Quarter: 2015Q1

REPORT INFORMATION
  Report Type: Report from Study
  Country: CA (occurrence: CA)
  Receive Date: 20140605
  Receipt Date: 20150325
  Transmission Date: 20150720
  Serious: Yes (Other)
  Sender: FDA-Public Use
  Company Number: CA-JNJFOC-20140518581

PATIENT
  Age: 21 Year
  Sex: Female
  Weight: 70.8 kg

DRUGS (7)
  1. REMICADE [Suspect]
     Active Substance: INFLIXIMAB
     Indication: COLITIS ULCERATIVE
     Route: 042
     Dates: start: 20120514
  2. MERCAPTOPURINE. [Concomitant]
     Active Substance: MERCAPTOPURINE
     Dosage: HALF TAB PER DAY. THE PATIENT DID NOT TAKE REGULARLY
     Route: 048
  3. CIPRALEX [Concomitant]
     Active Substance: ESCITALOPRAM OXALATE
     Route: 065
  4. ALESSE 28 [Concomitant]
     Active Substance: ETHINYL ESTRADIOL\LEVONORGESTREL
     Route: 065
  5. REMICADE [Suspect]
     Active Substance: INFLIXIMAB
     Indication: COLITIS ULCERATIVE
     Dosage: 21ST INFUSION
     Route: 042
     Dates: start: 20150317
  6. REMICADE [Suspect]
     Active Substance: INFLIXIMAB
     Indication: COLITIS ULCERATIVE
     Dosage: 16TH INFUSION
     Route: 042
     Dates: start: 20140528
  7. MEZAVANT [Concomitant]
     Active Substance: MESALAMINE
     Route: 065

REACTIONS (2)
  - Perineal ulceration [Not Recovered/Not Resolved]
  - Fistula [Not Recovered/Not Resolved]

NARRATIVE: CASE EVENT DATE: 201405
